FAERS Safety Report 9564219 (Version 3)
Quarter: 2013Q4

REPORT INFORMATION
  Report Type: Spontaneous
  Country: JP (occurrence: JP)
  Receive Date: 20130930
  Receipt Date: 20131125
  Transmission Date: 20140711
  Serious: No
  Sender: FDA-Public Use
  Company Number: JP-BRISTOL-MYERS SQUIBB COMPANY-19409945

PATIENT
  Age: 20 Year
  Sex: Female

DRUGS (3)
  1. ABILIFY TABS [Suspect]
     Indication: MANIA
     Dosage: 18JUN13?19JUN13-23JUN13-12MG-ORAL?24JUN13-ONGOING-6MG
     Route: 048
     Dates: start: 20130617
  2. NITRAZEPAM [Concomitant]
     Dates: start: 20130610
  3. FLUNITRAZEPAM [Concomitant]
     Dates: start: 20130610

REACTIONS (1)
  - Pancytopenia [Recovered/Resolved]
